FAERS Safety Report 10966913 (Version 3)
Quarter: 2015Q2

REPORT INFORMATION
  Report Type: Report from Study
  Country: DE (occurrence: DE)
  Receive Date: 20150330
  Receipt Date: 20150526
  Transmission Date: 20150821
  Serious: Yes (Life-Threatening, Hospitalization)
  Sender: FDA-Public Use
  Company Number: DE-AMGEN-DEUCT2014078620

PATIENT
  Age: 68 Year
  Sex: Male
  Weight: 68 kg

DRUGS (29)
  1. POSACONAZOL [Concomitant]
     Active Substance: POSACONAZOLE
     Dosage: 400 MG, UNK
     Route: 048
     Dates: start: 20140919
  2. KALIUMCHLORID [Concomitant]
     Dosage: 3.5-40 ML, UNK
     Route: 042
     Dates: start: 20140926, end: 20140930
  3. FLUCLOXACILLIN [Concomitant]
     Active Substance: FLUCLOXACILLIN
     Dosage: 1 G, UNK
     Route: 042
     Dates: start: 20140929, end: 20141002
  4. REDUCTO-SPEZIAL [Concomitant]
     Dosage: 1 UNK, UNK
     Route: 048
     Dates: start: 20141001
  5. MOXONIDIN [Concomitant]
     Active Substance: MOXONIDINE
     Dosage: 0.3-0.4 MG, UNK
     Route: 048
     Dates: start: 20141004
  6. METHOTREXATE (METHOTREXATE SODIUM) [Concomitant]
     Active Substance: METHOTREXATE SODIUM
     Dosage: 15 MUG, UNK
     Route: 037
     Dates: start: 20140926, end: 20140926
  7. AMLODIPIN                          /00972401/ [Concomitant]
     Active Substance: AMLODIPINE BESYLATE
     Dosage: 5 MG, UNK
     Route: 048
     Dates: start: 20140929, end: 20141003
  8. CYTARABIN [Concomitant]
     Active Substance: CYTARABINE
     Dosage: 40 MG, UNK
     Route: 037
     Dates: start: 20140926, end: 20140926
  9. RAMIPRIL. [Concomitant]
     Active Substance: RAMIPRIL
     Dosage: 5-10 MG, UNK
     Route: 048
     Dates: start: 201204
  10. BISOPROLOL [Concomitant]
     Active Substance: BISOPROLOL
     Dosage: 2.5 MG, UNK
     Route: 048
     Dates: start: 201204
  11. METRONIDAZOL                       /00012501/ [Concomitant]
     Active Substance: METRONIDAZOLE
     Dosage: 400 MG, UNK
     Route: 048
     Dates: start: 20140912, end: 20140925
  12. VERGENTAN [Concomitant]
     Dosage: 50 MG, UNK
     Route: 042
     Dates: start: 20140925, end: 20140925
  13. ONDANSETRON [Concomitant]
     Active Substance: ONDANSETRON
     Dosage: 8 MG, UNK
     Route: 042
     Dates: start: 20140926, end: 20140930
  14. NITRAZEPAM [Concomitant]
     Active Substance: NITRAZEPAM
     Dosage: 5 MG, UNK
     Route: 048
     Dates: start: 20140928, end: 20141004
  15. SPIRONOLACTON [Concomitant]
     Active Substance: SPIRONOLACTONE
     Dosage: 25-50 MG, UNK
     Route: 048
     Dates: start: 20140926, end: 20141008
  16. CEFTRIAXON [Concomitant]
     Active Substance: CEFTRIAXONE
     Dosage: 2 G, UNK
     Route: 042
     Dates: start: 20140930, end: 20141007
  17. PARACETAMOL [Concomitant]
     Active Substance: ACETAMINOPHEN
     Dosage: 500 MG -1 G, UNK
     Route: 042
     Dates: start: 20141001, end: 20141002
  18. BLINATUMOMAB [Suspect]
     Active Substance: BLINATUMOMAB
     Indication: ACUTE LYMPHOCYTIC LEUKAEMIA
     Dosage: 9 MCG, UNK
     Route: 041
     Dates: start: 20140930
  19. TAMSULOSIN [Concomitant]
     Active Substance: TAMSULOSIN
     Dosage: 0.4 MG, UNK
     Route: 048
  20. DALTEPARIN NA [Concomitant]
     Dosage: 2500 UNK, UNK
     Route: 058
     Dates: start: 20140925, end: 20141007
  21. MAGNESIUM [Concomitant]
     Active Substance: MAGNESIUM
     Dosage: 2-180 MG, UNK
     Route: 048
     Dates: start: 20140926, end: 20141001
  22. AZITHROMYCIN [Concomitant]
     Active Substance: AZITHROMYCIN ANHYDROUS
     Dosage: 250 MG, UNK
     Route: 048
     Dates: start: 20140912
  23. DEXAMETHASONE. [Concomitant]
     Active Substance: DEXAMETHASONE
     Dosage: 4-20 MG, UNK
     Dates: start: 20140926, end: 20141007
  24. LOPERAMIDE HCL [Concomitant]
     Active Substance: LOPERAMIDE HYDROCHLORIDE
     Dosage: 2-4 MG, UNK
     Route: 048
     Dates: start: 20140926
  25. ZOPICLON [Concomitant]
     Active Substance: ZOPICLONE
     Dosage: 7.5 G, UNK
     Route: 048
     Dates: start: 20141005, end: 20141005
  26. TAZOBAC [Concomitant]
     Active Substance: PIPERACILLIN SODIUM\TAZOBACTAM SODIUM
     Dosage: 4.5 G, UNK
     Route: 042
     Dates: start: 20141001, end: 20141008
  27. PANTOPRAZOLE SODIUM. [Concomitant]
     Active Substance: PANTOPRAZOLE SODIUM
     Dosage: 40 MG, UNK
     Route: 048
  28. EBRANTIL                           /00631801/ [Concomitant]
     Active Substance: URAPIDIL
     Dosage: 10 MG, UNK
     Route: 042
     Dates: start: 20141003, end: 20141003
  29. CEFUROXIM                          /00454602/ [Concomitant]
     Active Substance: CEFUROXIME
     Dosage: 500 MG, UNK
     Route: 048
     Dates: start: 20141008, end: 20141014

REACTIONS (2)
  - Fall [Recovered/Resolved]
  - Haemorrhage intracranial [Recovered/Resolved]

NARRATIVE: CASE EVENT DATE: 20141009
